FAERS Safety Report 6998707-5 (Version None)
Quarter: 2010Q3

REPORT INFORMATION
  Report Type: 
  Country: None (occurrence: None)
  Receive Date: 20100920
  Receipt Date: 20100204
  Transmission Date: 20110219
  Serious: Yes (Hospitalization)
  Sender: FDA-Public Use
  Company Number: US-ASTRAZENECA-2009SE17809

PATIENT
  Age: 16380 Day
  Sex: Female
  Weight: 93.9 kg

DRUGS (7)
  1. SEROQUEL [Suspect]
     Indication: BIPOLAR DISORDER
     Dosage: VARIOUS DOSAGES
     Route: 048
     Dates: start: 20020101, end: 20080101
  2. SEROQUEL [Suspect]
     Indication: SCHIZOPHRENIA
     Dosage: VARIOUS DOSAGES
     Route: 048
     Dates: start: 20020101, end: 20080101
  3. ABILIFY [Concomitant]
     Dates: start: 20080101, end: 20080101
  4. GEODON [Concomitant]
     Dates: start: 20011101, end: 20011101
  5. HALDOL [Concomitant]
  6. TRAZODONE HCL [Concomitant]
  7. EFFEXOR XR [Concomitant]

REACTIONS (4)
  - DIABETIC COMA [None]
  - DIABETIC KETOACIDOSIS [None]
  - OBESITY [None]
  - TYPE 2 DIABETES MELLITUS [None]
